FAERS Safety Report 17504758 (Version 3)
Quarter: 2020Q3

REPORT INFORMATION
  Report Type: Report from Study
  Country: US (occurrence: US)
  Receive Date: 20200305
  Receipt Date: 20200928
  Transmission Date: 20201102
  Serious: Yes (Death)
  Sender: FDA-Public Use
  Company Number: US-EXELIXIS-CABO-20027801

PATIENT
  Age: 56 Year
  Sex: Female

DRUGS (36)
  1. CABOMETYX [Suspect]
     Active Substance: CABOZANTINIB S-MALATE
     Indication: RENAL CANCER
     Dosage: 40 MG, QD
     Route: 048
  2. PREDNISONE. [Concomitant]
     Active Substance: PREDNISONE
  3. ELIQUIS [Concomitant]
     Active Substance: APIXABAN
     Dosage: UNK
  4. HYDROCODONE BITARTRATE AND ACETAMINOPHEN [Concomitant]
     Active Substance: ACETAMINOPHEN\HYDROCODONE BITARTRATE
     Dosage: UNK
  5. OXYCODONE/APAP [Concomitant]
     Active Substance: ACETAMINOPHEN\OXYCODONE HYDROCHLORIDE
  6. PANTOPRAZOLE [Concomitant]
     Active Substance: PANTOPRAZOLE
  7. SUCRALFATE. [Concomitant]
     Active Substance: SUCRALFATE
  8. CABOMETYX [Suspect]
     Active Substance: CABOZANTINIB S-MALATE
     Dosage: 20 MG, QD
     Route: 048
     Dates: start: 20200228
  9. OMEPRAZOLE. [Concomitant]
     Active Substance: OMEPRAZOLE
  10. CHOLESTYRAMINE. [Concomitant]
     Active Substance: CHOLESTYRAMINE
  11. MELATONIN [Concomitant]
     Active Substance: MELATONIN
  12. OXYCODONE [Concomitant]
     Active Substance: OXYCODONE
  13. OXYCONTIN [Concomitant]
     Active Substance: OXYCODONE HYDROCHLORIDE
  14. IRON [Concomitant]
     Active Substance: IRON
     Dosage: UNK
  15. METRONIDAZOLE. [Concomitant]
     Active Substance: METRONIDAZOLE
  16. PROCHLORPERAZINE. [Concomitant]
     Active Substance: PROCHLORPERAZINE
  17. SENNA [Concomitant]
     Active Substance: SENNA LEAF\SENNOSIDES\SENNOSIDES A AND B
  18. NYSTATIN. [Concomitant]
     Active Substance: NYSTATIN
  19. SCOPOLAMINE [Concomitant]
     Active Substance: SCOPOLAMINE
  20. POLYETHYLENE GLYCOL [Concomitant]
     Active Substance: POLYETHYLENE GLYCOLS
  21. LIDOCAINE/PRILOCAINE [Concomitant]
     Active Substance: LIDOCAINE\PRILOCAINE
     Dosage: UNK
  22. DRONABINOL. [Concomitant]
     Active Substance: DRONABINOL
  23. K PHOS NEUTRAL [Concomitant]
     Active Substance: POTASSIUM PHOSPHATE, MONOBASIC\SODIUM PHOSPHATE, DIBASIC, ANHYDROUS\SODIUM PHOSPHATE, MONOBASIC, MONOHYDRATE
  24. ZINC SULFATE. [Concomitant]
     Active Substance: ZINC SULFATE
  25. LORAZEPAM. [Concomitant]
     Active Substance: LORAZEPAM
     Dosage: UNK
  26. MAGNESIUM OXIDE. [Concomitant]
     Active Substance: MAGNESIUM OXIDE
     Dosage: UNK
  27. ATROPINE SULATE [Concomitant]
     Active Substance: ATROPINE SULFATE
  28. ENOXAPARIN [Concomitant]
     Active Substance: ENOXAPARIN
  29. FLUCONAZOLE. [Concomitant]
     Active Substance: FLUCONAZOLE
  30. POTASSIUM CHLORIDE. [Concomitant]
     Active Substance: POTASSIUM CHLORIDE
  31. MONTELUKAST [Concomitant]
     Active Substance: MONTELUKAST SODIUM
  32. ONDANSETRON [Concomitant]
     Active Substance: ONDANSETRON
  33. LEVOFLOXACIN. [Concomitant]
     Active Substance: LEVOFLOXACIN
     Dosage: UNK
  34. ORAVIG [Concomitant]
     Active Substance: MICONAZOLE
  35. METOCLOPRAM [Concomitant]
     Active Substance: METOCLOPRAMIDE
  36. CIPROFLOXACIN. [Concomitant]
     Active Substance: CIPROFLOXACIN
     Dosage: UNK

REACTIONS (12)
  - Blood pressure increased [Unknown]
  - Dehydration [Unknown]
  - Diarrhoea [Unknown]
  - Death [Fatal]
  - Abdominal pain [Unknown]
  - Constipation [Unknown]
  - Gastrointestinal haemorrhage [Unknown]
  - Dyspnoea [Unknown]
  - Palmar-plantar erythrodysaesthesia syndrome [Unknown]
  - Anaemia [Unknown]
  - Skin ulcer [Unknown]
  - Taste disorder [Unknown]

NARRATIVE: CASE EVENT DATE: 202001
